FAERS Safety Report 7212002-0 (Version None)
Quarter: 2011Q1

REPORT INFORMATION
  Report Type: 
  Country: None (occurrence: None)
  Receive Date: 20110106
  Receipt Date: 20101222
  Transmission Date: 20110831
  Serious: No
  Sender: FDA-Public Use
  Company Number: US-BIOGENIDEC-2011BI000051

PATIENT
  Age: 42 Year
  Sex: Female

DRUGS (3)
  1. MOTRIN [Concomitant]
  2. AVONEX [Suspect]
     Indication: MULTIPLE SCLEROSIS
     Route: 030
  3. AVONEX [Suspect]
     Route: 030
     Dates: start: 20101202

REACTIONS (5)
  - ASTHENIA [None]
  - DIZZINESS [None]
  - OPTIC NEURITIS [None]
  - INCREASED TENDENCY TO BRUISE [None]
  - FATIGUE [None]
